FAERS Safety Report 17593559 (Version 2)
Quarter: 2020Q3

REPORT INFORMATION
  Report Type: Report from Study
  Country: FR (occurrence: FR)
  Receive Date: 20200327
  Receipt Date: 20200407
  Transmission Date: 20201104
  Serious: Yes (Disabling, Other)
  Sender: FDA-Public Use
  Company Number: NVSC2020FR078031

PATIENT
  Age: 76 Year
  Sex: Female

DRUGS (2)
  1. BROLUCIZUMAB. [Suspect]
     Active Substance: BROLUCIZUMAB
     Indication: RETINAL VEIN OCCLUSION
     Dosage: 6 MG
     Route: 031
     Dates: start: 20191216, end: 20200217
  2. PERINDOPRIL [Concomitant]
     Active Substance: PERINDOPRIL
     Indication: BLOOD PRESSURE INCREASED
     Dosage: UNK
     Route: 065
     Dates: start: 20190801

REACTIONS (3)
  - Iridocyclitis [Recovered/Resolved with Sequelae]
  - Uveitis [Not Recovered/Not Resolved]
  - Vasculitis [Not Recovered/Not Resolved]

NARRATIVE: CASE EVENT DATE: 20200301
